FAERS Safety Report 18989097 (Version 1)
Quarter: 2021Q1

REPORT INFORMATION
  Report Type: Spontaneous
  Country: US (occurrence: US)
  Receive Date: 20210309
  Receipt Date: 20210309
  Transmission Date: 20210420
  Serious: No
  Sender: FDA-Public Use
  Company Number: US-BIOGEN-2019BI00814603

PATIENT
  Sex: Male

DRUGS (1)
  1. TECFIDERA [Suspect]
     Active Substance: DIMETHYL FUMARATE
     Indication: MULTIPLE SCLEROSIS
     Route: 048
     Dates: start: 20171211

REACTIONS (5)
  - Underdose [Unknown]
  - Multiple sclerosis [Unknown]
  - Malaise [Not Recovered/Not Resolved]
  - Mobility decreased [Recovered/Resolved]
  - Flushing [Recovered/Resolved]
